FAERS Safety Report 10655805 (Version 1)
Quarter: 2014Q4

REPORT INFORMATION
  Report Type: Spontaneous
  Country: IN (occurrence: IN)
  Receive Date: 20141216
  Receipt Date: 20141216
  Transmission Date: 20150529
  Serious: Yes (Death, Other)
  Sender: FDA-Public Use
  Company Number: PHHY2014IN160360

PATIENT
  Age: 27 Year
  Sex: Female

DRUGS (4)
  1. TACROLIMUS. [Suspect]
     Active Substance: TACROLIMUS
     Indication: IMMUNOSUPPRESSION
     Route: 065
  2. PREDNISOLONE. [Suspect]
     Active Substance: PREDNISOLONE
     Indication: IMMUNOSUPPRESSION
     Dosage: 5 MG, QD
     Route: 048
  3. SIROLIMUS. [Suspect]
     Active Substance: SIROLIMUS
     Indication: IMMUNOSUPPRESSION
     Route: 065
  4. MYCOPHENOLATE MOFETIL. [Suspect]
     Active Substance: MYCOPHENOLATE MOFETIL
     Indication: IMMUNOSUPPRESSION
     Dosage: 750 MG, BID
     Route: 065

REACTIONS (9)
  - Dyspnoea exertional [Fatal]
  - Complications of transplanted kidney [Unknown]
  - Multi-organ failure [Fatal]
  - Pyrexia [Fatal]
  - Tachypnoea [Fatal]
  - Pneumocystis jirovecii pneumonia [Fatal]
  - Toxicity to various agents [Unknown]
  - Cough [Fatal]
  - Crepitations [Fatal]
